FAERS Safety Report 12136677 (Version 1)
Quarter: 2016Q1

REPORT INFORMATION
  Report Type: Spontaneous
  Country: US (occurrence: None)
  Receive Date: 20160301
  Receipt Date: 20160301
  Transmission Date: 20160526
  Serious: No
  Sender: FDA-Public Use
  Company Number: None

PATIENT
  Age: 54 Year
  Sex: Male

DRUGS (2)
  1. GLIPERIDE [Concomitant]
     Active Substance: GLIMEPIRIDE
  2. METFOMIN [Suspect]
     Active Substance: METFORMIN HYDROCHLORIDE

REACTIONS (6)
  - Renal disorder [None]
  - Pain in extremity [None]
  - Arthralgia [None]
  - Abdominal pain upper [None]
  - Neuropathy peripheral [None]
  - Metabolic acidosis [None]
